FAERS Safety Report 6439981-3 (Version None)
Quarter: 2009Q4

REPORT INFORMATION
  Report Type: 
  Country: None (occurrence: None)
  Receive Date: 20091112
  Receipt Date: 20091112
  Transmission Date: 20100525
  Serious: Yes (Other)
  Sender: FDA-Public Use
  Company Number: None

PATIENT
  Sex: Female

DRUGS (2)
  1. PEGASYS [Suspect]
     Indication: HEPATITIS C
     Dosage: 180 MCG/ 0.5ML 180MCG SC WEEKLY SQ
     Route: 058
     Dates: start: 20091009, end: 20091109
  2. RIBAVIRIN [Suspect]
     Indication: HEPATITIS C
     Dosage: 200 MG CAP 84 3 CAP BID PO
     Route: 048
     Dates: start: 20091009, end: 20091109

REACTIONS (6)
  - DISEASE RECURRENCE [None]
  - HERPES ZOSTER [None]
  - INCREASED TENDENCY TO BRUISE [None]
  - PETECHIAE [None]
  - PLATELET COUNT DECREASED [None]
  - WHITE BLOOD CELL COUNT DECREASED [None]
